FAERS Safety Report 21945536 (Version 1)
Quarter: 2023Q1

REPORT INFORMATION
  Report Type: Report from Study
  Country: US (occurrence: US)
  Receive Date: 20230202
  Receipt Date: 20230202
  Transmission Date: 20230417
  Serious: Yes (Other)
  Sender: FDA-Public Use
  Company Number: US-002147023-NVSC2023US020099

PATIENT
  Sex: Female
  Weight: 78.47 kg

DRUGS (2)
  1. ATORVASTATIN [Suspect]
     Active Substance: ATORVASTATIN
     Indication: Product used for unknown indication
     Dosage: 10 MG
     Route: 048
  2. LEVOTHYROXINE [Suspect]
     Active Substance: LEVOTHYROXINE
     Indication: Product used for unknown indication
     Dosage: 100 MG
     Route: 048

REACTIONS (7)
  - Psoriatic arthropathy [Unknown]
  - Rash [Unknown]
  - Psoriasis [Unknown]
  - Nail psoriasis [Unknown]
  - Guttate psoriasis [Unknown]
  - Dermatitis psoriasiform [Unknown]
  - Arthropathy [Unknown]
